FAERS Safety Report 8576578-3 (Version None)
Quarter: 2012Q3

REPORT INFORMATION
  Report Type: 
  Country: None (occurrence: None)
  Receive Date: 20120807
  Receipt Date: 20120723
  Transmission Date: 20120928
  Serious: Yes (Other)
  Sender: FDA-Public Use
  Company Number: GB-WATSON-2012-11775

PATIENT
  Age: 49 Year
  Sex: Female

DRUGS (7)
  1. MIRTAZAPINE [Suspect]
     Indication: DEPRESSION
     Dosage: 45 MG, DAILY
     Route: 048
     Dates: start: 20060101, end: 20120121
  2. CLOZARIL [Suspect]
     Dosage: 25 MG, UNKNOWN
     Route: 048
     Dates: start: 20120112
  3. AMOXICILLIN [Concomitant]
     Indication: TOOTHACHE
     Dosage: UNK UNK, DAILY
     Route: 048
     Dates: start: 20120116, end: 20120126
  4. TOPIRAMATE [Suspect]
     Indication: PSYCHOTIC DISORDER
     Dosage: 300 MG, DAILY
     Route: 048
     Dates: start: 20070101, end: 20120121
  5. CLOZARIL [Suspect]
     Indication: SCHIZOPHRENIA
     Dosage: 75 MG, UNKNOWN
     Route: 065
     Dates: start: 20120112, end: 20120117
  6. CLOZARIL [Suspect]
     Dosage: 650 MG, UNKNOWN
     Route: 048
     Dates: start: 20060814, end: 20120109
  7. ZOPICLONE [Concomitant]
     Indication: SLEEP DISORDER
     Dosage: 2.5 MG, UNKNOWN, ONGOING USE FOR YEARS, STILL TAKING
     Route: 048

REACTIONS (9)
  - EOSINOPHIL COUNT DECREASED [None]
  - ROAD TRAFFIC ACCIDENT [None]
  - TOOTHACHE [None]
  - NEUTROPHIL COUNT DECREASED [None]
  - NEUTROPENIA [None]
  - WHITE BLOOD CELL COUNT DECREASED [None]
  - SCRATCH [None]
  - INJURY [None]
  - TOOTH INFECTION [None]
